FAERS Safety Report 18164381 (Version 13)
Quarter: 2022Q4

REPORT INFORMATION
  Report Type: Spontaneous
  Country: US (occurrence: US)
  Receive Date: 20200818
  Receipt Date: 20221002
  Transmission Date: 20230112
  Serious: Yes (Other)
  Sender: FDA-Public Use
  Company Number: US-PFIZER INC-2020061049

PATIENT
  Age: 85 Year
  Sex: Female
  Weight: 73.48 kg

DRUGS (11)
  1. PREMARIN [Suspect]
     Active Substance: ESTROGENS, CONJUGATED
     Indication: Vulvovaginal dryness
     Dosage: UNK, AS NEEDED (SHE DOESN^T USE THE PRODUCT REGULARLY, ONLY AS NEEDED)
  2. PREMARIN [Suspect]
     Active Substance: ESTROGENS, CONJUGATED
     Indication: Haemorrhoids
     Dosage: UNK, 2X/WEEK
     Dates: start: 201404
  3. AEROMIST [Concomitant]
     Dosage: UNK, AS NEEDED
  4. HYDROXYZINE [Concomitant]
     Active Substance: HYDROXYZINE HYDROCHLORIDE
     Indication: Hypersensitivity
     Dosage: UNK
  5. LEXAPRO [Concomitant]
     Active Substance: ESCITALOPRAM OXALATE
     Indication: Anxiety
     Dosage: UNK
  6. LIPITOR [Concomitant]
     Active Substance: ATORVASTATIN CALCIUM
     Indication: Blood cholesterol abnormal
     Dosage: UNK
  7. LOSARTAN POTASSIUM [Concomitant]
     Active Substance: LOSARTAN POTASSIUM
     Indication: Blood pressure abnormal
     Dosage: UNK
  8. LOPERMIDE [Concomitant]
     Indication: Irritable bowel syndrome
     Dosage: UNK
  9. SYSTANE (HYPROMELLOSE 2910 (4000 MPA.S)) [Concomitant]
     Active Substance: HYPROMELLOSE 2910 (4000 MPA.S)
     Dosage: UNK
  10. CHOLECALCIFEROL [Concomitant]
     Active Substance: CHOLECALCIFEROL
     Dosage: UNK, 1X/DAY
  11. XANAX [Concomitant]
     Active Substance: ALPRAZOLAM
     Indication: Anxiety
     Dosage: UNK

REACTIONS (19)
  - Glaucoma [Unknown]
  - Hypoacusis [Unknown]
  - Brain injury [Unknown]
  - Gastritis bacterial [Unknown]
  - Tooth extraction [Unknown]
  - Choking sensation [Unknown]
  - Nocturia [Unknown]
  - Urinary tract infection [Unknown]
  - Neuritis [Unknown]
  - Blood pressure increased [Unknown]
  - Ear pain [Unknown]
  - Headache [Unknown]
  - Weight increased [Unknown]
  - Mental disorder [Unknown]
  - Tinnitus [Unknown]
  - Therapeutic response unexpected [Unknown]
  - Dry skin [Unknown]
  - Off label use [Unknown]
  - Intentional product misuse [Unknown]
